FAERS Safety Report 20026933 (Version 2)
Quarter: 2022Q2

REPORT INFORMATION
  Report Type: Report from Study
  Country: NL (occurrence: NL)
  Receive Date: 20211103
  Receipt Date: 20220429
  Transmission Date: 20220721
  Serious: Yes (Hospitalization, Other)
  Sender: FDA-Public Use
  Company Number: NL-CELLTRION INC.-2021NL014612

PATIENT

DRUGS (90)
  1. RITUXIMAB [Suspect]
     Active Substance: RITUXIMAB
     Indication: Mantle cell lymphoma
     Route: 065
  2. CYCLOPHOSPHAMIDE [Suspect]
     Active Substance: CYCLOPHOSPHAMIDE
     Indication: Bone marrow conditioning regimen
     Route: 042
  3. DEXAMETHASONE [Suspect]
     Active Substance: DEXAMETHASONE
     Indication: Neurotoxicity
     Dosage: 10 MG, QID
     Route: 042
     Dates: start: 20201023, end: 20201024
  4. DEXAMETHASONE [Suspect]
     Active Substance: DEXAMETHASONE
     Dosage: 10 MG, QD
     Route: 048
     Dates: start: 20201022, end: 20201023
  5. DEXAMETHASONE [Suspect]
     Active Substance: DEXAMETHASONE
     Dosage: 10 MG, QID
     Route: 042
     Dates: start: 20201026, end: 20201102
  6. DEXAMETHASONE [Suspect]
     Active Substance: DEXAMETHASONE
     Dosage: 10 MG, QD
     Route: 048
     Dates: start: 20201022, end: 20201022
  7. DEXAMETHASONE [Suspect]
     Active Substance: DEXAMETHASONE
     Dosage: 10 MG, TID
     Route: 042
     Dates: start: 20201102, end: 20201108
  8. DEXAMETHASONE [Suspect]
     Active Substance: DEXAMETHASONE
     Dosage: 10 MG, QD
     Route: 042
     Dates: start: 20201021, end: 20201021
  9. DEXAMETHASONE [Suspect]
     Active Substance: DEXAMETHASONE
     Dosage: 10 MG, TID
     Route: 042
     Dates: start: 20201103
  10. FLUDARABINE [Suspect]
     Active Substance: FLUDARABINE PHOSPHATE
     Indication: Bone marrow conditioning regimen
     Route: 042
  11. INSULIN GLARGINE [Suspect]
     Active Substance: INSULIN GLARGINE
     Indication: Product used for unknown indication
     Dosage: 30 IU, QD
     Route: 058
     Dates: start: 20201103, end: 20201103
  12. INSULIN GLARGINE [Suspect]
     Active Substance: INSULIN GLARGINE
     Dosage: 50 IU, QD
     Route: 058
     Dates: start: 20201106, end: 20201108
  13. INSULIN GLARGINE [Suspect]
     Active Substance: INSULIN GLARGINE
     Dosage: 5 IU, QD
     Route: 058
     Dates: start: 20201115, end: 20210114
  14. INSULIN GLARGINE [Suspect]
     Active Substance: INSULIN GLARGINE
     Dosage: 5 IU, QD
     Route: 058
     Dates: start: 20201115
  15. INSULIN GLARGINE [Suspect]
     Active Substance: INSULIN GLARGINE
     Dosage: UNK
     Route: 058
     Dates: start: 20201026, end: 20201103
  16. INSULIN GLARGINE [Suspect]
     Active Substance: INSULIN GLARGINE
     Dosage: 12 IU
     Route: 058
     Dates: start: 20201026, end: 20201029
  17. INSULIN GLARGINE [Suspect]
     Active Substance: INSULIN GLARGINE
     Dosage: 24 IU, QD
     Route: 058
     Dates: start: 20201102, end: 20201103
  18. INSULIN GLARGINE [Suspect]
     Active Substance: INSULIN GLARGINE
     Dosage: 20 IU, QD
     Route: 058
     Dates: start: 20201111, end: 20201112
  19. INSULIN GLARGINE [Suspect]
     Active Substance: INSULIN GLARGINE
     Dosage: 15 IU, QD
     Route: 058
     Dates: start: 20201113, end: 20201113
  20. INSULIN GLARGINE [Suspect]
     Active Substance: INSULIN GLARGINE
     Dosage: 20 IU, QD
     Route: 058
     Dates: start: 20201101, end: 20201101
  21. INSULIN GLARGINE [Suspect]
     Active Substance: INSULIN GLARGINE
     Dosage: 16 IU, QD
     Route: 058
     Dates: start: 20201030, end: 20201031
  22. INSULIN GLARGINE [Suspect]
     Active Substance: INSULIN GLARGINE
     Dosage: 10 IU, QD
     Route: 058
     Dates: start: 20201114, end: 20201114
  23. BREXUCABTAGENE AUTOLEUCEL [Suspect]
     Active Substance: BREXUCABTAGENE AUTOLEUCEL
     Indication: Mantle cell lymphoma
     Dosage: UNK
     Route: 042
     Dates: start: 20201016, end: 20201016
  24. BACTRIM [Suspect]
     Active Substance: SULFAMETHOXAZOLE\TRIMETHOPRIM
     Indication: Product used for unknown indication
     Dosage: UNK
     Route: 065
  25. MESNA [Suspect]
     Active Substance: MESNA
     Indication: Prophylaxis
     Route: 042
  26. CARBOPLATIN [Suspect]
     Active Substance: CARBOPLATIN
     Indication: Mantle cell lymphoma
     Route: 065
  27. METHYLPREDNISOLONE [Suspect]
     Active Substance: METHYLPREDNISOLONE
     Indication: Product used for unknown indication
     Dosage: 1000 MG, QD
     Route: 042
     Dates: start: 20201024, end: 20201026
  28. METHYLPREDNISOLONE [Suspect]
     Active Substance: METHYLPREDNISOLONE
     Dosage: 500 MG, QD
     Route: 042
     Dates: start: 20201110, end: 20201110
  29. METHYLPREDNISOLONE [Suspect]
     Active Substance: METHYLPREDNISOLONE
     Dosage: 500 MG, ONCE
     Route: 042
     Dates: start: 20201110, end: 20201110
  30. METHYLPREDNISOLONE [Suspect]
     Active Substance: METHYLPREDNISOLONE
     Dosage: 1000 MG, QD
     Route: 042
     Dates: start: 20201109, end: 20201109
  31. METHYLPREDNISOLONE [Suspect]
     Active Substance: METHYLPREDNISOLONE
     Dosage: 250 MG, QD
     Route: 042
     Dates: start: 20201111, end: 20201111
  32. METHYLPREDNISOLONE [Suspect]
     Active Substance: METHYLPREDNISOLONE
     Dosage: 1 G, ONCE
     Route: 042
     Dates: start: 20201109, end: 20201109
  33. METHYLPREDNISOLONE [Suspect]
     Active Substance: METHYLPREDNISOLONE
     Dosage: 1000 MG, QD
     Route: 042
     Dates: start: 20201025, end: 20201025
  34. METHYLPREDNISOLONE [Suspect]
     Active Substance: METHYLPREDNISOLONE
     Dosage: 500 MG, ONCE
     Route: 042
     Dates: start: 20201110, end: 20201110
  35. CIPROFLOXACIN [Concomitant]
     Active Substance: CIPROFLOXACIN
     Dosage: 500 MG, QD
     Route: 048
     Dates: start: 20201024, end: 20201025
  36. CIPROFLOXACIN [Concomitant]
     Active Substance: CIPROFLOXACIN
     Dosage: 400 MG, BID
     Route: 042
     Dates: start: 20201025, end: 20201028
  37. METOCLOPRAMIDE [Concomitant]
     Active Substance: METOCLOPRAMIDE
     Dosage: 10 MG, TID
     Route: 065
     Dates: start: 20201021
  38. FLUCONAZOLE [Concomitant]
     Active Substance: FLUCONAZOLE
     Dosage: 50 MG, QD
     Route: 065
     Dates: start: 20201111, end: 20201112
  39. FLUCONAZOLE [Concomitant]
     Active Substance: FLUCONAZOLE
     Dosage: 50 MG, QD
     Route: 048
     Dates: start: 20201113, end: 20201119
  40. FLUCONAZOLE [Concomitant]
     Active Substance: FLUCONAZOLE
     Dosage: 50 MG, QD
     Route: 042
     Dates: start: 20201025
  41. PANTOPRAZOLE [Concomitant]
     Active Substance: PANTOPRAZOLE
     Dosage: 40 MG, QD
     Route: 048
     Dates: start: 20201010, end: 20201024
  42. PANTOPRAZOLE [Concomitant]
     Active Substance: PANTOPRAZOLE
     Dosage: 40 MG, QD
     Route: 048
     Dates: start: 20201112
  43. HALOPERIDOL [Concomitant]
     Active Substance: HALOPERIDOL
     Dosage: UNK
     Route: 048
     Dates: start: 20201025, end: 20201102
  44. HALOPERIDOL [Concomitant]
     Active Substance: HALOPERIDOL
     Dosage: 1 MG, QD
     Route: 048
     Dates: start: 20201116, end: 20201116
  45. HALOPERIDOL [Concomitant]
     Active Substance: HALOPERIDOL
     Dosage: 0.5 MG, QD
     Route: 048
     Dates: start: 20201025, end: 20201026
  46. HALOPERIDOL [Concomitant]
     Active Substance: HALOPERIDOL
     Dosage: 1 MG, BID
     Route: 042
     Dates: start: 20201031, end: 20201102
  47. HALOPERIDOL [Concomitant]
     Active Substance: HALOPERIDOL
     Dosage: 1 MG, QD
     Route: 042
     Dates: start: 20201107, end: 20201108
  48. HALOPERIDOL [Concomitant]
     Active Substance: HALOPERIDOL
     Dosage: 1 MG, BID
     Route: 042
     Dates: start: 20201112, end: 20201115
  49. HALOPERIDOL [Concomitant]
     Active Substance: HALOPERIDOL
     Dosage: 2.5 MG, BID
     Route: 042
     Dates: start: 20201109, end: 20201109
  50. HALOPERIDOL [Concomitant]
     Active Substance: HALOPERIDOL
     Dosage: 0.5 MG, QD
     Route: 048
     Dates: start: 20201117, end: 20201117
  51. HALOPERIDOL [Concomitant]
     Active Substance: HALOPERIDOL
     Dosage: 1 MG, QD
     Route: 048
     Dates: start: 20201026, end: 20201027
  52. ESOMEPRAZOLE [Concomitant]
     Active Substance: ESOMEPRAZOLE
     Dosage: 1 MG
     Route: 048
     Dates: start: 20201111, end: 20201112
  53. ESOMEPRAZOLE [Concomitant]
     Active Substance: ESOMEPRAZOLE
     Dosage: 40 MG, QD
     Route: 042
     Dates: start: 20201025
  54. CALCIUM GLUCONATE [Concomitant]
     Active Substance: CALCIUM GLUCONATE
     Dosage: 1000 MG, ONCE
     Route: 042
     Dates: start: 20201024, end: 20201024
  55. ONDANSETRON [Concomitant]
     Active Substance: ONDANSETRON
     Dosage: 8 MG, BID
     Route: 048
     Dates: start: 20201009, end: 20201019
  56. LEVETIRACETAM [Concomitant]
     Active Substance: LEVETIRACETAM
     Dosage: 500 MG, BID
     Route: 042
     Dates: start: 20201025
  57. LEVETIRACETAM [Concomitant]
     Active Substance: LEVETIRACETAM
     Dosage: 500 MG, BID
     Route: 048
     Dates: start: 20201114, end: 20201118
  58. SODIUM PHOSPHATE [Concomitant]
     Active Substance: SODIUM PHOSPHATE
     Dosage: 30 MMOL, ONCE
     Route: 048
     Dates: start: 20201023, end: 20201023
  59. SODIUM PHOSPHATE [Concomitant]
     Active Substance: SODIUM PHOSPHATE
     Dosage: 30 MMOL, BID
     Route: 048
     Dates: start: 20201022, end: 20201022
  60. SODIUM PHOSPHATE [Concomitant]
     Active Substance: SODIUM PHOSPHATE
     Dosage: 30 MMOL, QID
     Route: 048
     Dates: start: 20201102, end: 20201103
  61. CEFTAZIDIME [Concomitant]
     Active Substance: CEFTAZIDIME
     Dosage: 2000 MG, TID
     Route: 042
     Dates: start: 20201022, end: 20201024
  62. CEFTAZIDIME [Concomitant]
     Active Substance: CEFTAZIDIME
     Dosage: 2000 MG, TID
     Route: 042
     Dates: start: 20201017, end: 20201024
  63. NADROPARIN [Concomitant]
     Active Substance: NADROPARIN
     Dosage: 2850 IU, QD
     Route: 058
     Dates: start: 20201024
  64. INSULIN ASPART [Concomitant]
     Active Substance: INSULIN ASPART
     Dosage: 0-100 IE/HOUR; CONTINUOUS
     Route: 042
  65. INSULIN ASPART [Concomitant]
     Active Substance: INSULIN ASPART
     Dosage: UNK; 2-6 IU
     Route: 058
     Dates: start: 20201027, end: 20201109
  66. INSULIN ASPART [Concomitant]
     Active Substance: INSULIN ASPART
     Dosage: UNK
     Route: 042
     Dates: start: 20201109, end: 20201111
  67. INSULIN ASPART [Concomitant]
     Active Substance: INSULIN ASPART
     Dosage: 10 IU
     Route: 042
     Dates: start: 20201024, end: 20201024
  68. INSULIN ASPART [Concomitant]
     Active Substance: INSULIN ASPART
     Dosage: UNK, PRN
     Route: 058
     Dates: start: 20201111, end: 20210114
  69. INSULIN ASPART [Concomitant]
     Active Substance: INSULIN ASPART
     Dosage: UNK
     Route: 058
     Dates: start: 20201022, end: 20201027
  70. GENTAMICIN [Concomitant]
     Active Substance: GENTAMICIN
     Dosage: 440 MG, ONCE
     Route: 042
     Dates: start: 20201021, end: 20201021
  71. CEFTRIAXONE [Concomitant]
     Active Substance: CEFTRIAXONE
     Dosage: 2000 MG, QD
     Route: 042
     Dates: start: 20201021, end: 20201021
  72. CEFTRIAXONE [Concomitant]
     Active Substance: CEFTRIAXONE
     Dosage: 2000 MG, BID
     Route: 042
     Dates: start: 20201109, end: 20201111
  73. CEFTRIAXONE [Concomitant]
     Active Substance: CEFTRIAXONE
     Dosage: 2000 MG, BID
     Route: 042
     Dates: start: 20201013, end: 20201013
  74. ALLOPURINOL [Concomitant]
     Active Substance: ALLOPURINOL
     Dosage: 300 MG, QD
     Route: 048
     Dates: start: 20201016, end: 20201020
  75. NOREPINEPHRINE [Concomitant]
     Active Substance: NOREPINEPHRINE
     Dosage: UNK
     Route: 042
     Dates: start: 20201024, end: 20201024
  76. SULFAMETHOXAZOLE\TRIMETHOPRIM [Concomitant]
     Active Substance: SULFAMETHOXAZOLE\TRIMETHOPRIM
     Dosage: 480 MG, QD
     Route: 048
     Dates: start: 20210709
  77. SULFAMETHOXAZOLE\TRIMETHOPRIM [Concomitant]
     Active Substance: SULFAMETHOXAZOLE\TRIMETHOPRIM
     Dosage: 480 MG, QD
     Route: 048
     Dates: start: 20201025, end: 20201026
  78. SULFAMETHOXAZOLE\TRIMETHOPRIM [Concomitant]
     Active Substance: SULFAMETHOXAZOLE\TRIMETHOPRIM
     Dosage: UNK
     Route: 048
     Dates: start: 20201013
  79. SULFAMETHOXAZOLE\TRIMETHOPRIM [Concomitant]
     Active Substance: SULFAMETHOXAZOLE\TRIMETHOPRIM
     Dosage: 480 MG, QD
     Route: 048
     Dates: start: 20201115
  80. SULFAMETHOXAZOLE\TRIMETHOPRIM [Concomitant]
     Active Substance: SULFAMETHOXAZOLE\TRIMETHOPRIM
     Dosage: 480 MG, QD
     Route: 065
     Dates: start: 20201111, end: 20201114
  81. VALACYCLOVIR HYDROCHLORIDE [Concomitant]
     Active Substance: VALACYCLOVIR HYDROCHLORIDE
     Indication: Herpes zoster
     Dosage: 500 MG, BID
     Route: 048
     Dates: start: 20201009, end: 20201024
  82. VALACYCLOVIR HYDROCHLORIDE [Concomitant]
     Active Substance: VALACYCLOVIR HYDROCHLORIDE
     Dosage: 500 MG, BID
     Route: 048
     Dates: start: 20201017, end: 20201024
  83. VALACYCLOVIR HYDROCHLORIDE [Concomitant]
     Active Substance: VALACYCLOVIR HYDROCHLORIDE
     Dosage: 260 MG, BID
     Route: 065
     Dates: start: 20201110, end: 20201112
  84. VALACYCLOVIR HYDROCHLORIDE [Concomitant]
     Active Substance: VALACYCLOVIR HYDROCHLORIDE
     Dosage: 1000 MG, BID
     Route: 065
     Dates: start: 20210803, end: 20210812
  85. VALACYCLOVIR HYDROCHLORIDE [Concomitant]
     Active Substance: VALACYCLOVIR HYDROCHLORIDE
     Dosage: 500 MG, BID
     Route: 048
     Dates: start: 20201112
  86. VALACYCLOVIR HYDROCHLORIDE [Concomitant]
     Active Substance: VALACYCLOVIR HYDROCHLORIDE
     Dosage: 500 MG, BID
     Route: 048
     Dates: start: 20201112
  87. CLEMASTINE [Concomitant]
     Active Substance: CLEMASTINE
     Dosage: 2 MG, ONCE
     Route: 042
     Dates: start: 20201016, end: 20201016
  88. MODERNA COVID-19 VACCINE [Concomitant]
     Active Substance: ELASOMERAN
     Dosage: UNK
     Dates: start: 20210430, end: 20210430
  89. CARBASPIRIN CALCIUM [Concomitant]
     Active Substance: CARBASPIRIN CALCIUM
     Dosage: 100 MG, QD
     Route: 048
     Dates: start: 20210706
  90. METFORMIN [Concomitant]
     Active Substance: METFORMIN HYDROCHLORIDE
     Indication: Diabetes mellitus
     Dosage: 1000 MG, BID
     Route: 048
     Dates: start: 20201111

REACTIONS (30)
  - Cognitive disorder [Recovered/Resolved]
  - Delirium [Recovered/Resolved]
  - Hypothalamo-pituitary disorder [Recovered/Resolved]
  - Hyponatraemia [Recovered/Resolved]
  - Sinus bradycardia [Recovered/Resolved]
  - Urinary retention [Recovered/Resolved]
  - Hyperkalaemia [Recovered/Resolved]
  - Haemolytic anaemia [Not Recovered/Not Resolved]
  - Herpes zoster reactivation [Recovered/Resolved]
  - Folliculitis [Recovered/Resolved]
  - Acute kidney injury [Recovered/Resolved]
  - Platelet count decreased [Not Recovered/Not Resolved]
  - Febrile neutropenia [Recovered/Resolved]
  - Myalgia [Recovered/Resolved]
  - Neutrophil count decreased [Recovered/Resolved]
  - Cytokine release syndrome [Recovered/Resolved]
  - Diarrhoea [Not Recovered/Not Resolved]
  - Herpes zoster reactivation [Not Recovered/Not Resolved]
  - Scrotal pain [Recovered/Resolved]
  - Lymphocyte count decreased [Not Recovered/Not Resolved]
  - Haematuria [Not Recovered/Not Resolved]
  - Fatigue [Recovered/Resolved]
  - Malaise [Recovered/Resolved]
  - Chills [Recovered/Resolved]
  - Neutrophil count decreased [Not Recovered/Not Resolved]
  - Malaise [Recovered/Resolved]
  - Pyrexia [Recovered/Resolved]
  - Hypotension [Recovered/Resolved]
  - Fatigue [Recovered/Resolved]
  - Off label use [Unknown]

NARRATIVE: CASE EVENT DATE: 20201009
